FAERS Safety Report 13243409 (Version 1)
Quarter: 2017Q1

REPORT INFORMATION
  Report Type: Spontaneous
  Country: US (occurrence: US)
  Receive Date: 20170216
  Receipt Date: 20170216
  Transmission Date: 20170428
  Serious: Yes (Life-Threatening, Other)
  Sender: FDA-Public Use
  Company Number: US-MALLINCKRODT-T201600068

PATIENT

DRUGS (1)
  1. INOMAX [Suspect]
     Active Substance: NITRIC OXIDE
     Indication: PRODUCT USED FOR UNKNOWN INDICATION
     Dosage: 20 PPM, CONTINUOUS
     Dates: start: 20160108

REACTIONS (3)
  - Off label use [Unknown]
  - Blood pressure decreased [Recovered/Resolved]
  - Oxygen saturation decreased [Recovered/Resolved]

NARRATIVE: CASE EVENT DATE: 20160108
